FAERS Safety Report 7719350-6 (Version None)
Quarter: 2011Q3

REPORT INFORMATION
  Report Type: 
  Country: None (occurrence: None)
  Receive Date: 20110825
  Receipt Date: 20110811
  Transmission Date: 20111222
  Serious: Yes (Death)
  Sender: FDA-Public Use
  Company Number: JPI-P-013164

PATIENT
  Age: 28 Year
  Sex: Female
  Weight: 74.8435 kg

DRUGS (15)
  1. XYREM [Suspect]
     Indication: NARCOLEPSY
     Dosage: 4.5 GM (2.25 GM, 2 IN 1 D),ORAL 9 GM (4.5 GM, 2 IN 1 D) , ORAL 10 GM (5 GM, 2 IN 1 D) , ORAL (5 GM F
     Route: 048
     Dates: start: 20101104, end: 20101101
  2. XYREM [Suspect]
     Indication: FIBROMYALGIA
     Dosage: 4.5 GM (2.25 GM, 2 IN 1 D),ORAL 9 GM (4.5 GM, 2 IN 1 D) , ORAL 10 GM (5 GM, 2 IN 1 D) , ORAL (5 GM F
     Route: 048
     Dates: start: 20101104, end: 20101101
  3. XYREM [Suspect]
     Indication: NARCOLEPSY
     Dosage: 4.5 GM (2.25 GM, 2 IN 1 D),ORAL 9 GM (4.5 GM, 2 IN 1 D) , ORAL 10 GM (5 GM, 2 IN 1 D) , ORAL (5 GM F
     Route: 048
     Dates: start: 20100805, end: 20101103
  4. XYREM [Suspect]
     Indication: FIBROMYALGIA
     Dosage: 4.5 GM (2.25 GM, 2 IN 1 D),ORAL 9 GM (4.5 GM, 2 IN 1 D) , ORAL 10 GM (5 GM, 2 IN 1 D) , ORAL (5 GM F
     Route: 048
     Dates: start: 20100805, end: 20101103
  5. XYREM [Suspect]
     Indication: NARCOLEPSY
     Dosage: 4.5 GM (2.25 GM, 2 IN 1 D),ORAL 9 GM (4.5 GM, 2 IN 1 D) , ORAL 10 GM (5 GM, 2 IN 1 D) , ORAL (5 GM F
     Route: 048
     Dates: start: 20101101, end: 20101101
  6. XYREM [Suspect]
     Indication: FIBROMYALGIA
     Dosage: 4.5 GM (2.25 GM, 2 IN 1 D),ORAL 9 GM (4.5 GM, 2 IN 1 D) , ORAL 10 GM (5 GM, 2 IN 1 D) , ORAL (5 GM F
     Route: 048
     Dates: start: 20101101, end: 20101101
  7. XYREM [Suspect]
     Indication: NARCOLEPSY
     Dosage: 4.5 GM (2.25 GM, 2 IN 1 D),ORAL 9 GM (4.5 GM, 2 IN 1 D) , ORAL 10 GM (5 GM, 2 IN 1 D) , ORAL (5 GM F
     Route: 048
     Dates: start: 20100628, end: 20100804
  8. XYREM [Suspect]
     Indication: FIBROMYALGIA
     Dosage: 4.5 GM (2.25 GM, 2 IN 1 D),ORAL 9 GM (4.5 GM, 2 IN 1 D) , ORAL 10 GM (5 GM, 2 IN 1 D) , ORAL (5 GM F
     Route: 048
     Dates: start: 20100628, end: 20100804
  9. DULOXETINE HYDROCHLORIDE [Suspect]
     Indication: FIBROMYALGIA
     Dosage: 90 MG (90 MG,1 IN 1 D)
     Dates: start: 20101126
  10. DULOXETINE HYDROCHLORIDE [Suspect]
     Indication: FIBROMYALGIA
     Dosage: 90 MG (90 MG,1 IN 1 D)
     Dates: start: 20100301, end: 20101125
  11. EXCEDRIN (MIGRAINE) [Concomitant]
  12. NAPROXEN [Concomitant]
  13. RIZATRIPTAN [Concomitant]
  14. VENLAFAXINE HYDROCHLORIDE [Suspect]
     Indication: FIBROMYALGIA
     Dosage: 10 MG (10 MG,1 IN 1 D)
     Dates: start: 20101126
  15. NORTRIPTYLINE HCL [Suspect]
     Indication: PRODUCT USED FOR UNKNOWN INDICATION
     Dosage: 10 MG, 1 IN 1 D)

REACTIONS (15)
  - HEADACHE [None]
  - WEIGHT DECREASED [None]
  - HYPERTENSION [None]
  - NEPHROLITHIASIS [None]
  - MIDDLE INSOMNIA [None]
  - VOMITING [None]
  - CHILLS [None]
  - HEART INJURY [None]
  - MYALGIA [None]
  - SOMNOLENCE [None]
  - CHEST PAIN [None]
  - DRUG SCREEN POSITIVE [None]
  - MALAISE [None]
  - NAUSEA [None]
  - SLEEP APNOEA SYNDROME [None]
